FAERS Safety Report 9552886 (Version 1)
Quarter: 2013Q3

REPORT INFORMATION
  Report Type: Spontaneous
  Country: US (occurrence: None)
  Receive Date: 20130724
  Receipt Date: 20130724
  Transmission Date: 20140515
  Serious: No
  Sender: FDA-Public Use
  Company Number: PHEH2013US002800

PATIENT
  Age: 18 Year
  Sex: Male

DRUGS (1)
  1. GLEEVEC [Suspect]
     Dates: end: 20130124

REACTIONS (1)
  - Disease progression [None]
